FAERS Safety Report 6076813-X (Version None)
Quarter: 2009Q1

REPORT INFORMATION
  Report Type: 
  Country: None (occurrence: None)
  Receive Date: 20090213
  Receipt Date: 20090206
  Transmission Date: 20090719
  Serious: Yes (Other)
  Sender: FDA-Public Use
  Company Number: FR-JNJFOC-20090106666

PATIENT
  Age: 83 Year
  Sex: Female

DRUGS (6)
  1. REMINYL [Suspect]
     Indication: ABNORMAL BEHAVIOUR
  2. COVERSYL [Concomitant]
  3. ASPEGIC 325 [Concomitant]
  4. CALCIUM [Concomitant]
  5. VITAMINE D [Concomitant]
  6. AUGMENTIN '125' [Concomitant]

REACTIONS (5)
  - BRADYCARDIA [None]
  - FALL [None]
  - LOSS OF CONSCIOUSNESS [None]
  - MALAISE [None]
  - SYNCOPE [None]
